FAERS Safety Report 21729119 (Version 2)
Quarter: 2022Q4

REPORT INFORMATION
  Report Type: Spontaneous
  Country: CN (occurrence: CN)
  Receive Date: 20221214
  Receipt Date: 20221219
  Transmission Date: 20230112
  Serious: Yes (Other)
  Sender: FDA-Public Use
  Company Number: CN-009507513-2212CHN004000

PATIENT
  Age: 57 Year
  Sex: Male

DRUGS (3)
  1. KEYTRUDA [Suspect]
     Active Substance: PEMBROLIZUMAB
     Dosage: 200MG D1, Q3W
     Dates: start: 20221014, end: 20221104
  2. PACLITAXEL [Suspect]
     Active Substance: PACLITAXEL
     Dosage: 460MG D1, Q3W
     Dates: start: 20221014
  3. CISPLATIN [Suspect]
     Active Substance: CISPLATIN
     Dosage: 65MG D1-2, Q3W
     Dates: start: 20221014

REACTIONS (3)
  - Immune-mediated hepatic disorder [Recovered/Resolved]
  - Radiotherapy [Unknown]
  - Malignant neoplasm progression [Unknown]

NARRATIVE: CASE EVENT DATE: 20220101
